FAERS Safety Report 7438697-4 (Version None)
Quarter: 2011Q2

REPORT INFORMATION
  Report Type: 
  Country: None (occurrence: None)
  Receive Date: 20110426
  Receipt Date: 20110413
  Transmission Date: 20111010
  Serious: Yes (Other)
  Sender: FDA-Public Use
  Company Number: SG-BAYER-2011-032214

PATIENT
  Age: 58 Year
  Sex: Male

DRUGS (5)
  1. ERYTHROMYCIN [Suspect]
  2. ACETAMINOPHEN [Suspect]
  3. INDOMETHACIN SODIUM [Suspect]
  4. ASPIRIN [Suspect]
  5. AMPICILLIN [Suspect]

REACTIONS (1)
  - ANGIOEDEMA [None]
